FAERS Safety Report 4987725-4 (Version None)
Quarter: 2006Q2

REPORT INFORMATION
  Report Type: 
  Country: None (occurrence: None)
  Receive Date: 20060428
  Receipt Date: 20060428
  Transmission Date: 20061013
  Serious: Yes (Hospitalization)
  Sender: FDA-Public Use
  Company Number: None

PATIENT
  Age: 70 Year
  Sex: Male
  Weight: 81.6475 kg

DRUGS (7)
  1. CEPHALEXIN [Suspect]
     Indication: CHRONIC OBSTRUCTIVE PULMONARY DISEASE
     Dosage: 500 MG Q6H PO
     Route: 048
     Dates: start: 20060410, end: 20060414
  2. ZITHROMAX [Suspect]
     Indication: CHRONIC OBSTRUCTIVE PULMONARY DISEASE
     Dosage: 250 MG Q DAY PO
     Route: 048
     Dates: start: 20060415, end: 20060419
  3. ATENOLOL [Concomitant]
  4. FELODIPINE [Concomitant]
  5. SUNVASTATUB [Concomitant]
  6. OMEPRAZOLE [Concomitant]
  7. PENTOXIFYLLINE [Concomitant]

REACTIONS (6)
  - ABDOMINAL PAIN [None]
  - DEHYDRATION [None]
  - DIARRHOEA [None]
  - PYREXIA [None]
  - SELF-MEDICATION [None]
  - VIRAL INFECTION [None]
